FAERS Safety Report 21940569 (Version 1)
Quarter: 2023Q1

REPORT INFORMATION
  Report Type: Report from Study
  Country: US (occurrence: US)
  Receive Date: 20230201
  Receipt Date: 20230201
  Transmission Date: 20230418
  Serious: No
  Sender: FDA-Public Use
  Company Number: US-EXELIXIS-CABO-22051326

PATIENT
  Age: 59 Year
  Sex: Male

DRUGS (13)
  1. CABOMETYX [Suspect]
     Active Substance: CABOZANTINIB S-MALATE
     Indication: Renal cancer
     Dosage: 40 MG, QD
     Route: 048
     Dates: start: 20210227
  2. AMLODIPINE [Concomitant]
     Active Substance: AMLODIPINE BESYLATE
  3. ATORVASTATIN [Concomitant]
     Active Substance: ATORVASTATIN
  4. FISH OIL [Concomitant]
     Active Substance: FISH OIL
  5. HYDROCHLOROTHIAZIDE [Concomitant]
     Active Substance: HYDROCHLOROTHIAZIDE
  6. ACETAMINOPHEN\HYDROCODONE [Concomitant]
     Active Substance: ACETAMINOPHEN\HYDROCODONE
  7. IBUPROFEN [Concomitant]
     Active Substance: IBUPROFEN
  8. LISINOPRIL [Concomitant]
     Active Substance: LISINOPRIL
  9. LOSARTAN POTASSIUM [Concomitant]
     Active Substance: LOSARTAN POTASSIUM
  10. TIZANIDINE [Concomitant]
     Active Substance: TIZANIDINE
  11. TRIAMCINOLONE [Concomitant]
     Active Substance: TRIAMCINOLONE
  12. VITAMIN D3 [Concomitant]
     Active Substance: CHOLECALCIFEROL
  13. ACETAMINOPHEN\HYDROCODONE [Concomitant]
     Active Substance: ACETAMINOPHEN\HYDROCODONE

REACTIONS (3)
  - Myalgia [Unknown]
  - Diarrhoea [Unknown]
  - Fatigue [Unknown]

NARRATIVE: CASE EVENT DATE: 20220421
